FAERS Safety Report 7129794-1 (Version None)
Quarter: 2010Q4

REPORT INFORMATION
  Report Type: 
  Country: None (occurrence: None)
  Receive Date: 20101130
  Receipt Date: 20101026
  Transmission Date: 20110411
  Serious: No
  Sender: FDA-Public Use
  Company Number: US-AMGEN-KDL397333

PATIENT

DRUGS (11)
  1. CORTICOSTEROID NOS [Concomitant]
  2. NPLATE [Suspect]
     Indication: IDIOPATHIC THROMBOCYTOPENIC PURPURA
     Dosage: 150 A?G, QWK
     Route: 058
     Dates: start: 20091016, end: 20091105
  3. NPLATE [Suspect]
     Dosage: 300 A?G, QWK
     Route: 058
     Dates: start: 20091106, end: 20091126
  4. NPLATE [Suspect]
     Dosage: 450 A?G, QWK
     Route: 058
     Dates: start: 20091127, end: 20100205
  5. NPLATE [Suspect]
     Dosage: 3 A?G/KG, UNK
     Dates: start: 20091001
  6. PREDNISONE [Concomitant]
     Dosage: 40 MG, UNK
     Dates: start: 20100205, end: 20100302
  7. TRIAMCINOLONE [Concomitant]
     Dosage: UNK
     Route: 061
     Dates: start: 20100205, end: 20100309
  8. HYDROXYZINE [Concomitant]
     Dosage: 25 MG, UNK
  9. LISINOPRIL [Concomitant]
     Dosage: UNK
     Dates: start: 20090826
  10. AMLODIPINE [Concomitant]
     Dosage: UNK
     Dates: start: 20090113
  11. MULTI-VITAMINS [Concomitant]

REACTIONS (4)
  - BLOOD PRESSURE INCREASED [None]
  - DELIRIUM TREMENS [None]
  - PRURITUS [None]
  - RASH [None]
